FAERS Safety Report 8388231-X (Version None)
Quarter: 2012Q2

REPORT INFORMATION
  Report Type: 
  Country: None (occurrence: None)
  Receive Date: 20120525
  Receipt Date: 20120511
  Transmission Date: 20120825
  Serious: No
  Sender: FDA-Public Use
  Company Number: US-ASTRAZENECA-2012SE17544

PATIENT
  Age: 42 Year
  Sex: Female
  Weight: 72.6 kg

DRUGS (3)
  1. VIMOVO [Suspect]
     Indication: ARTHRITIS
     Dosage: 500 MG/20 MG, TWO TIMES A DAY
     Route: 048
  2. TIROSINT [Concomitant]
     Indication: THYROID DISORDER
  3. VIMOVO [Suspect]
     Dosage: 500 MG/20 MG, TWO TIMES A DAY
     Route: 048

REACTIONS (1)
  - CHEST PAIN [None]
